FAERS Safety Report 7762723-6 (Version None)
Quarter: 2011Q3

REPORT INFORMATION
  Report Type: 
  Country: None (occurrence: None)
  Receive Date: 20110920
  Receipt Date: 20110909
  Transmission Date: 20111222
  Serious: Yes (Hospitalization)
  Sender: FDA-Public Use
  Company Number: US-JNJFOC-20110901965

PATIENT
  Sex: Male
  Weight: 57.7 kg

DRUGS (10)
  1. REMICADE [Suspect]
     Route: 042
     Dates: start: 20110425
  2. REMICADE [Suspect]
     Route: 042
     Dates: start: 20110103
  3. DIPHENHYDRAMINE HCL [Concomitant]
  4. REMICADE [Suspect]
     Indication: INFLAMMATORY BOWEL DISEASE
     Route: 042
     Dates: start: 20100927
  5. REMICADE [Suspect]
     Route: 042
     Dates: start: 20101116
  6. ACETAMINOPHEN [Concomitant]
  7. LIDOCAINE/PRILOCAINE [Concomitant]
  8. REMICADE [Suspect]
     Route: 042
     Dates: start: 20110606
  9. REMICADE [Suspect]
     Route: 042
     Dates: start: 20110718
  10. REMICADE [Suspect]
     Route: 042
     Dates: start: 20100913

REACTIONS (1)
  - LARGE INTESTINE PERFORATION [None]
